FAERS Safety Report 6321688-4 (Version None)
Quarter: 2009Q3

REPORT INFORMATION
  Report Type: 
  Country: None (occurrence: None)
  Receive Date: 20090821
  Receipt Date: 20090821
  Transmission Date: 20100115
  Serious: Yes (Other)
  Sender: FDA-Public Use
  Company Number: None

PATIENT
  Age: 28 Year
  Sex: Female
  Weight: 110.6777 kg

DRUGS (1)
  1. CYMBALTA [Suspect]
     Indication: DEPRESSION
     Dosage: ONE DAILY ORAL
     Route: 048
     Dates: start: 20090201, end: 20090610

REACTIONS (6)
  - BALANCE DISORDER [None]
  - DRUG WITHDRAWAL SYNDROME [None]
  - HEADACHE [None]
  - VERTIGO [None]
  - VISION BLURRED [None]
  - VOMITING [None]
